FAERS Safety Report 13429970 (Version 1)
Quarter: 2017Q2

REPORT INFORMATION
  Report Type: Spontaneous
  Country: US (occurrence: US)
  Receive Date: 20170411
  Receipt Date: 20170411
  Transmission Date: 20170830
  Serious: Yes (Hospitalization)
  Sender: FDA-Public Use
  Company Number: None

PATIENT
  Age: 33 Year
  Sex: Female
  Weight: 74.3 kg

DRUGS (2)
  1. METRONIDAZOLE. [Concomitant]
     Active Substance: METRONIDAZOLE
  2. SULFAMETHOXAZOLE/TRIMETHOPRIM [Suspect]
     Active Substance: SULFAMETHOXAZOLE\TRIMETHOPRIM
     Indication: CELLULITIS
     Route: 048
     Dates: start: 20160928, end: 20161007

REACTIONS (6)
  - Urinary tract infection [None]
  - Stevens-Johnson syndrome [None]
  - Drug hypersensitivity [None]
  - Vulvovaginal pain [None]
  - Hypophagia [None]
  - Fungal infection [None]

NARRATIVE: CASE EVENT DATE: 20161004
